FAERS Safety Report 4696565-5 (Version None)
Quarter: 2005Q2

REPORT INFORMATION
  Report Type: 
  Country: None (occurrence: None)
  Receive Date: 20050620
  Receipt Date: 20050610
  Transmission Date: 20051028
  Serious: Yes (Hospitalization)
  Sender: FDA-Public Use
  Company Number: 2005US-00558

PATIENT
  Age: 77 Year
  Sex: Male

DRUGS (2)
  1. CLARITHROMYCIN [Suspect]
     Indication: RESPIRATORY TRACT INFECTION
     Dosage: 500 MG
  2. NIFEDIPINE [Concomitant]

REACTIONS (5)
  - BRADYCARDIA [None]
  - CYANOSIS [None]
  - DRUG INTERACTION [None]
  - HAEMODIALYSIS [None]
  - SEPTIC SHOCK [None]
